FAERS Safety Report 23690619 (Version 3)
Quarter: 2024Q2

REPORT INFORMATION
  Report Type: Report from Study
  Country: BE (occurrence: BE)
  Receive Date: 20240401
  Receipt Date: 20240515
  Transmission Date: 20240716
  Serious: Yes (Hospitalization)
  Sender: FDA-Public Use
  Company Number: BE-ABBVIE-5699177

PATIENT
  Age: 74 Year
  Sex: Male
  Weight: 82 kg

DRUGS (10)
  1. CARBIDOPA\LEVODOPA [Suspect]
     Active Substance: CARBIDOPA\LEVODOPA
     Indication: Parkinson^s disease
     Dosage: MD: 9.0 ML, CD: 3.8 ML/H, ED: 3.0 ML DURING AT 16 HOURS.
     Route: 050
     Dates: start: 20240326, end: 20240409
  2. CARBIDOPA\LEVODOPA [Suspect]
     Active Substance: CARBIDOPA\LEVODOPA
     Route: 050
     Dates: start: 20120917
  3. CARBIDOPA\LEVODOPA [Suspect]
     Active Substance: CARBIDOPA\LEVODOPA
     Dosage: MD: 9.0 ML, CD: 3.8 ML/H, ED: 3.0 ML DURING AT 16 HOURS.
     Route: 050
     Dates: start: 20231030, end: 20240326
  4. CARBIDOPA\LEVODOPA [Suspect]
     Active Substance: CARBIDOPA\LEVODOPA
     Dosage: MD: 7.0 ML, CD: 3.7 ML/H, ED: 3.0 ML DURING 16 HOURS?DOSE REDUCED.?LAST ADMIN DATE APR 2024
     Route: 050
     Dates: start: 20240409
  5. CARBIDOPA\LEVODOPA [Suspect]
     Active Substance: CARBIDOPA\LEVODOPA
     Route: 050
     Dates: start: 202404
  6. BENSERAZIDE\LEVODOPA [Concomitant]
     Active Substance: BENSERAZIDE\LEVODOPA
     Indication: Product used for unknown indication
     Dosage: FORM STRENGTH: 125?FORM STRENGTH UNITS: UNKNOWN? - FREQUENCY TEXT: AT 22 HOURS
     Route: 065
  7. BENSERAZIDE\LEVODOPA [Concomitant]
     Active Substance: BENSERAZIDE\LEVODOPA
     Indication: Product used for unknown indication
     Dosage: TIME INTERVAL: 0.33333333 DAYS
  8. BENSERAZIDE\LEVODOPA [Concomitant]
     Active Substance: BENSERAZIDE\LEVODOPA
     Indication: Parkinson^s disease
     Dosage: FORM STRENGTH: 125? FORM STRENGTH UNITS: UNKNOWN? FREQUENCY TEXT: AT 6 HOURS
  9. STALEVO [Concomitant]
     Active Substance: CARBIDOPA\ENTACAPONE\LEVODOPA
     Indication: Product used for unknown indication
     Dosage: FORM STRENGTH: 150?FORM STRENGTH UNITS: UNKNOWN? FREQUENCY TEXT: AT 8:00, 10:30 ,13:00,15:30,19:00
  10. PRAMIPEXOLE [Concomitant]
     Active Substance: PRAMIPEXOLE\PRAMIPEXOLE DIHYDROCHLORIDE
     Indication: Product used for unknown indication
     Dosage: FORM STRENGTH: 0.7? FREQUENCY TEXT: AT 8:00,12:00,16:00,20:00

REACTIONS (7)
  - General physical health deterioration [Not Recovered/Not Resolved]
  - Enteral nutrition [Unknown]
  - Off label use [Unknown]
  - Device expulsion [Unknown]
  - Gastrointestinal disorder [Unknown]
  - Unintentional medical device removal [Unknown]
  - Dyskinesia [Unknown]

NARRATIVE: CASE EVENT DATE: 20240301
